FAERS Safety Report 18607089 (Version 3)
Quarter: 2021Q2

REPORT INFORMATION
  Report Type: Spontaneous
  Country: US (occurrence: US)
  Receive Date: 20201211
  Receipt Date: 20210409
  Transmission Date: 20210717
  Serious: No
  Sender: FDA-Public Use
  Company Number: US-PFIZER INC-2020489351

PATIENT
  Age: 30 Year
  Sex: Female

DRUGS (2)
  1. XELJANZ XR [Suspect]
     Active Substance: TOFACITINIB CITRATE
     Dosage: 11 MG
     Dates: start: 20201208
  2. XELJANZ XR [Suspect]
     Active Substance: TOFACITINIB CITRATE
     Dosage: 11 MG
     Dates: start: 20201205

REACTIONS (5)
  - Fatigue [Unknown]
  - Oropharyngeal pain [Unknown]
  - Oral pain [Unknown]
  - Confusional state [Unknown]
  - Head discomfort [Unknown]

NARRATIVE: CASE EVENT DATE: 2020
